FAERS Safety Report 10184943 (Version 2)
Quarter: 2014Q2

REPORT INFORMATION
  Report Type: Spontaneous
  Country: US (occurrence: US)
  Receive Date: 20140521
  Receipt Date: 20140606
  Transmission Date: 20141212
  Serious: Yes (Death, Hospitalization, Other)
  Sender: FDA-Public Use
  Company Number: US-AMGEN-USASP2014035913

PATIENT
  Age: 84 Year
  Sex: Female

DRUGS (1)
  1. PROLIA [Suspect]
     Indication: OSTEOPOROSIS POSTMENOPAUSAL
     Dosage: 60 MG, Q6MO
     Route: 065

REACTIONS (12)
  - Cardiac failure congestive [Fatal]
  - Renal failure [Fatal]
  - Obesity [Unknown]
  - Chronic obstructive pulmonary disease [Unknown]
  - Anaemia [Unknown]
  - Renal failure chronic [Unknown]
  - Oedema [Unknown]
  - General physical health deterioration [Unknown]
  - Terminal state [Unknown]
  - Pneumonia [Unknown]
  - Hyperkalaemia [Unknown]
  - Nasopharyngitis [Unknown]
